FAERS Safety Report 8691925 (Version 3)
Quarter: 2012Q4

REPORT INFORMATION
  Report Type: Report from Study
  Country: JP (occurrence: JP)
  Receive Date: 20120730
  Receipt Date: 20121214
  Transmission Date: 20130627
  Serious: Yes (Other)
  Sender: FDA-Public Use
  Company Number: JP-009507513-1207JPN009384

PATIENT
  Age: 63 Year
  Sex: Female
  Weight: 41 kg

DRUGS (14)
  1. PEGINTRON [Suspect]
     Indication: CHRONIC HEPATITIS C
     Dosage: 1.5 Microgram per kilogram, qw
     Route: 058
     Dates: start: 20120508, end: 20120725
  2. PEGINTRON [Suspect]
     Dosage: 1.5 Microgram, UNK
     Route: 058
     Dates: end: 20121003
  3. REBETOL [Suspect]
     Indication: CHRONIC HEPATITIS C
     Dosage: 400 mg, qd
     Route: 048
     Dates: start: 20120508, end: 20120510
  4. REBETOL [Suspect]
     Dosage: 200 mg, UNK
     Route: 048
     Dates: start: 20120511, end: 20120727
  5. REBETOL [Suspect]
     Dosage: 200 UNK, UNK
     Route: 048
     Dates: end: 20121003
  6. TELAVIC [Suspect]
     Indication: CHRONIC HEPATITIS C
     Dosage: 1500 mg qd
     Route: 048
     Dates: start: 20120508, end: 20120529
  7. TELAVIC [Suspect]
     Dosage: 1000 mg qd
     Route: 048
     Dates: start: 20120530, end: 20120619
  8. TELAVIC [Suspect]
     Dosage: 500 mg, qd
     Route: 048
     Dates: start: 20120620
  9. TELAVIC [Suspect]
     Dosage: 1000 mg qd
     Route: 048
     Dates: start: 20120626, end: 20120627
  10. EPADEL S [Concomitant]
     Indication: HYPERLIPIDAEMIA
     Dosage: 1800, mg, qd
     Route: 048
  11. LIVALO [Concomitant]
     Indication: HYPERLIPIDAEMIA
     Dosage: 2 mg, qd
     Route: 048
  12. FEROTYM [Concomitant]
     Indication: IRON DEFICIENCY ANAEMIA
     Dosage: 100 mg, qd
     Route: 048
  13. CLARITIN REDITABS TABLETS 10 MG [Concomitant]
     Indication: PROPHYLAXIS
     Dosage: 10 mg, qd
     Route: 048
     Dates: end: 20120710
  14. ETIZOLAM [Concomitant]
     Route: 048

REACTIONS (3)
  - Anaemia [Not Recovered/Not Resolved]
  - Anaemia [Not Recovered/Not Resolved]
  - Anaemia [Not Recovered/Not Resolved]
